FAERS Safety Report 15555403 (Version 1)
Quarter: 2018Q4

REPORT INFORMATION
  Report Type: Spontaneous
  Country: US (occurrence: US)
  Receive Date: 20181026
  Receipt Date: 20181026
  Transmission Date: 20190205
  Serious: No
  Sender: FDA-Public Use
  Company Number: US-HORIZON-PRE-0475-2018

PATIENT
  Age: 69 Year
  Sex: Female

DRUGS (9)
  1. ADVAIR HFA [Concomitant]
     Active Substance: FLUTICASONE PROPIONATE\SALMETEROL XINAFOATE
  2. RAYOS [Suspect]
     Active Substance: PREDNISONE
     Indication: RHEUMATOID ARTHRITIS
     Dosage: 5 MG ONCE A DAY AT NIGHT
  3. METHOTREXATE. [Concomitant]
     Active Substance: METHOTREXATE
  4. ACTEMRA [Concomitant]
     Active Substance: TOCILIZUMAB
  5. OXYGEN. [Concomitant]
     Active Substance: OXYGEN
  6. LISINOPRIL. [Concomitant]
     Active Substance: LISINOPRIL
  7. ZETIA [Concomitant]
     Active Substance: EZETIMIBE
  8. ZOLOFT [Concomitant]
     Active Substance: SERTRALINE HYDROCHLORIDE
  9. METANX CAPSULE [Concomitant]

REACTIONS (6)
  - Therapy cessation [Unknown]
  - Insurance issue [Unknown]
  - Peripheral swelling [Unknown]
  - Pain in extremity [Unknown]
  - Back pain [Unknown]
  - Swelling [Unknown]
